FAERS Safety Report 15894072 (Version 5)
Quarter: 2019Q3

REPORT INFORMATION
  Report Type: Spontaneous
  Country: BR (occurrence: BR)
  Receive Date: 20190131
  Receipt Date: 20190913
  Transmission Date: 20191004
  Serious: Yes (Hospitalization, Other)
  Sender: FDA-Public Use
  Company Number: BR-009507513-1901BRA009420

PATIENT
  Age: 44 Year
  Sex: Female
  Weight: 74 kg

DRUGS (12)
  1. TEMODAL [Suspect]
     Active Substance: TEMOZOLOMIDE
     Indication: OLIGOASTROCYTOMA
     Dosage: 4 DOSAGE FORM, QD
     Route: 048
     Dates: start: 20180815, end: 20180819
  2. CITOSTAL [Suspect]
     Active Substance: LOMUSTINE
     Indication: OLIGOASTROCYTOMA
     Dosage: 200 MILLIGRAM
     Dates: start: 20190618
  3. ACHE SINTOCALMY [Concomitant]
     Indication: ANXIETY
     Dosage: 600 MILLIGRAM, QD
  4. TEMODAL [Suspect]
     Active Substance: TEMOZOLOMIDE
     Dosage: 10TH CYCLE
     Route: 048
     Dates: start: 20190618, end: 20190623
  5. TEMODAL [Suspect]
     Active Substance: TEMOZOLOMIDE
     Indication: OLIGOASTROCYTOMA
     Dosage: 350 MILLIGRAM, QD, (1 TABLET PER DAY)
     Route: 048
     Dates: start: 20150921, end: 20160404
  6. TEMODAL [Suspect]
     Active Substance: TEMOZOLOMIDE
     Indication: OLIGOASTROCYTOMA
     Dosage: 1 DOSAGE FORM, QD
     Route: 048
     Dates: start: 20180815, end: 20180819
  7. AVASTIN [Suspect]
     Active Substance: BEVACIZUMAB
     Indication: OLIGOASTROCYTOMA
     Dosage: 300 MILLIGRAM
     Dates: start: 20190618
  8. AVASTIN [Concomitant]
     Active Substance: BEVACIZUMAB
     Dosage: UNK
     Dates: start: 20160404, end: 20180814
  9. TEMODAL [Suspect]
     Active Substance: TEMOZOLOMIDE
     Dosage: 200 MILLIGRAM  PER DAY (6TH CYCLE)
  10. TEMODAL [Suspect]
     Active Substance: TEMOZOLOMIDE
     Dosage: ( 7TH CYCLE)200 MILLIGRAM, QD
     Route: 048
     Dates: start: 20190308, end: 201906
  11. AVASTIN [Suspect]
     Active Substance: BEVACIZUMAB
     Dosage: UNK
     Dates: start: 20190801
  12. IRINOTECAN HYDROCHLORIDE. [Concomitant]
     Active Substance: IRINOTECAN HYDROCHLORIDE
     Dosage: UNK
     Dates: start: 20160404, end: 20180814

REACTIONS (25)
  - Malignant neoplasm progression [Unknown]
  - Fall [Unknown]
  - Dyslipidaemia [Unknown]
  - Inappropriate schedule of product administration [Unknown]
  - Malignant neoplasm progression [Unknown]
  - Balance disorder [Unknown]
  - Vitamin D deficiency [Unknown]
  - Renal impairment [Unknown]
  - Pancytopenia [Unknown]
  - Karnofsky scale worsened [Unknown]
  - Urinary tract infection [Recovered/Resolved]
  - White blood cell count decreased [Unknown]
  - Malignant neoplasm progression [Unknown]
  - Fall [Unknown]
  - Gastric disorder [Unknown]
  - Urinary tract infection [Recovered/Resolved]
  - Nausea [Unknown]
  - Off label use [Unknown]
  - Brain oedema [Unknown]
  - Gait disturbance [Unknown]
  - Platelet count decreased [Unknown]
  - Vomiting [Unknown]
  - Hepatic steatosis [Unknown]
  - Platelet count decreased [Unknown]
  - Oligoastrocytoma [Recovering/Resolving]

NARRATIVE: CASE EVENT DATE: 20150921
